FAERS Safety Report 8609717-6 (Version None)
Quarter: 2012Q3

REPORT INFORMATION
  Report Type: 
  Country: None (occurrence: None)
  Receive Date: 20120821
  Receipt Date: 20120820
  Transmission Date: 20120928
  Serious: No
  Sender: FDA-Public Use
  Company Number: US-BAYER-2012-086120

PATIENT

DRUGS (3)
  1. ACETAMINOPHEN [Suspect]
     Indication: HEADACHE
     Dosage: UNK
     Dates: start: 20120819
  2. ALEVE (CAPLET) [Suspect]
     Indication: HEADACHE
     Dosage: UNK
     Dates: start: 20120819
  3. MOTRIN [Suspect]
     Indication: HEADACHE
     Dosage: UNK
     Dates: start: 20120819

REACTIONS (1)
  - HEADACHE [None]
